FAERS Safety Report 17664848 (Version 1)
Quarter: 2020Q2

REPORT INFORMATION
  Report Type: Spontaneous
  Country: US (occurrence: US)
  Receive Date: 20200414
  Receipt Date: 20200414
  Transmission Date: 20200713
  Serious: No
  Sender: FDA-Public Use
  Company Number: US-PFIZER INC-2020151183

PATIENT
  Age: 59 Year
  Sex: Female
  Weight: 104.99 kg

DRUGS (2)
  1. XELJANZ XR [Suspect]
     Active Substance: TOFACITINIB CITRATE
     Indication: PSORIATIC ARTHROPATHY
     Dosage: 11 MG, 1X/DAY
     Route: 048
     Dates: start: 2019
  2. SYNTHROID [Suspect]
     Active Substance: LEVOTHYROXINE SODIUM
     Dosage: UNK

REACTIONS (8)
  - Chest pain [Recovered/Resolved]
  - Tension headache [Unknown]
  - Decreased appetite [Unknown]
  - Nasal congestion [Unknown]
  - Seasonal allergy [Unknown]
  - Therapeutic product effect decreased [Unknown]
  - Oropharyngeal pain [Unknown]
  - Rhinorrhoea [Unknown]
